FAERS Safety Report 6406237-4 (Version None)
Quarter: 2009Q4

REPORT INFORMATION
  Report Type: 
  Country: None (occurrence: None)
  Receive Date: 20091019
  Receipt Date: 20091005
  Transmission Date: 20100525
  Serious: Yes (Other)
  Sender: FDA-Public Use
  Company Number: PHHY2009JP19994

PATIENT
  Sex: Male
  Weight: 58 kg

DRUGS (6)
  1. DIOVAN T30230+TAB+HY [Suspect]
     Dosage: 80 MG, QD
     Route: 048
     Dates: start: 20071030, end: 20080813
  2. TAKEPRON [Concomitant]
     Dosage: 30 MG, UNK
     Route: 048
     Dates: start: 20070908, end: 20080813
  3. URINORM [Concomitant]
     Dosage: 25 MG, UNK
     Route: 048
     Dates: start: 20070908, end: 20080813
  4. SALOBEL [Concomitant]
     Dosage: 100 MG, UNK
     Route: 048
     Dates: start: 20071025, end: 20080813
  5. ALDACTONE [Concomitant]
     Dosage: 50 MG, UNK
     Route: 048
     Dates: start: 20071026, end: 20080813
  6. FOIPAN [Suspect]
     Dosage: 600 MG, UNK
     Route: 048
     Dates: start: 20040409, end: 20080813

REACTIONS (4)
  - BLOOD GLUCOSE INCREASED [None]
  - BLOOD PRESSURE INCREASED [None]
  - BLOOD UREA INCREASED [None]
  - BLOOD URIC ACID INCREASED [None]
